FAERS Safety Report 7246993-9 (Version None)
Quarter: 2011Q1

REPORT INFORMATION
  Report Type: 
  Country: None (occurrence: None)
  Receive Date: 20110127
  Receipt Date: 20110114
  Transmission Date: 20110831
  Serious: No
  Sender: FDA-Public Use
  Company Number: US-PFIZER INC-US-WYE-H15172010

PATIENT
  Sex: Female
  Weight: 57.6 kg

DRUGS (4)
  1. PREMARIN [Suspect]
     Indication: PRODUCT USED FOR UNKNOWN INDICATION
     Dosage: UNSPECIFIED DOSE
     Route: 065
  2. ENABLEX [Concomitant]
  3. ESTROPIPATE [Suspect]
     Indication: NIGHT SWEATS
     Dosage: UNK
     Route: 048
     Dates: start: 20100101
  4. OGEN [Suspect]
     Indication: NIGHT SWEATS
     Dosage: 1.25 MG DAILY
     Route: 048
     Dates: start: 19900101, end: 20100101

REACTIONS (3)
  - DRUG HYPERSENSITIVITY [None]
  - MUSCLE SPASMS [None]
  - ABDOMINAL PAIN LOWER [None]
